FAERS Safety Report 23722462 (Version 1)
Quarter: 2024Q2

REPORT INFORMATION
  Report Type: Spontaneous
  Country: US (occurrence: None)
  Receive Date: 20240408
  Receipt Date: 20240408
  Transmission Date: 20240715
  Serious: Yes (Other)
  Sender: FDA-Public Use
  Company Number: None

PATIENT
  Age: 25 Year
  Sex: Female
  Weight: 90 kg

DRUGS (15)
  1. ZEPBOUND [Suspect]
     Active Substance: TIRZEPATIDE
     Indication: Weight decreased
     Dosage: WEEKLLY SUBCUTANEOUS?
     Route: 058
     Dates: start: 20240315, end: 20240323
  2. INCASSIA [Concomitant]
     Active Substance: NORETHINDRONE
  3. NEXPLANON [Concomitant]
     Active Substance: ETONOGESTREL
  4. ROSUVASTATIN CALCIUM [Concomitant]
  5. HERBALS\WITHANIA SOMNIFERA ROOT [Concomitant]
     Active Substance: HERBALS\WITHANIA SOMNIFERA ROOT
  6. BERBERINE [Concomitant]
     Active Substance: BERBERINE
  7. VITAMIN D [Concomitant]
     Active Substance: VITAMIN D NOS
  8. VITAMIN C [Concomitant]
     Active Substance: ASCORBIC ACID
  9. VITAMIN B12 [Concomitant]
     Active Substance: CYANOCOBALAMIN
  10. VITAMINS [Concomitant]
     Active Substance: VITAMINS
  11. CRANBERRY SUPPLEMENTS [Concomitant]
  12. INOSITOL [Concomitant]
     Active Substance: INOSITOL
  13. OVASITOL [Concomitant]
  14. SPEARMINT TEA [Concomitant]
  15. CANNABIDIOL [Concomitant]
     Active Substance: CANNABIDIOL

REACTIONS (3)
  - Retching [None]
  - Suicidal ideation [None]
  - Food aversion [None]

NARRATIVE: CASE EVENT DATE: 20240315
